FAERS Safety Report 7317052-1 (Version None)
Quarter: 2011Q1

REPORT INFORMATION
  Report Type: 
  Country: None (occurrence: None)
  Receive Date: 20110226
  Receipt Date: 20100917
  Transmission Date: 20110831
  Serious: No
  Sender: FDA-Public Use
  Company Number: US-ALLERGAN-1012088US

PATIENT
  Age: 57 Year
  Sex: Female

DRUGS (2)
  1. BOTOXA? [Suspect]
     Indication: MIGRAINE
  2. BOTOXA? [Suspect]
     Indication: TORTICOLLIS
     Dosage: UNK
     Route: 030
     Dates: start: 20100817, end: 20100817

REACTIONS (8)
  - MIGRAINE [None]
  - DIZZINESS [None]
  - FATIGUE [None]
  - URTICARIA [None]
  - ERYTHEMA OF EYELID [None]
  - VOMITING [None]
  - DRY EYE [None]
  - EYELID OEDEMA [None]
